FAERS Safety Report 6817916-9 (Version None)
Quarter: 2010Q3

REPORT INFORMATION
  Report Type: 
  Country: None (occurrence: None)
  Receive Date: 20100706
  Receipt Date: 20100625
  Transmission Date: 20110219
  Serious: Yes (Life-Threatening, Other)
  Sender: FDA-Public Use
  Company Number: GB-JNJFOC-20100608587

PATIENT
  Sex: Female
  Weight: 90 kg

DRUGS (15)
  1. REMICADE [Suspect]
     Indication: RHEUMATOID ARTHRITIS
     Route: 042
  2. REMICADE [Suspect]
     Route: 042
  3. ASPIRIN [Concomitant]
  4. ATENOLOL [Concomitant]
  5. BENDROFLUAZIDE [Concomitant]
  6. FOLIC ACID [Concomitant]
  7. HORMONE REPLACEMENT THERAPY [Concomitant]
  8. LISINOPRIL [Concomitant]
  9. LOSARTAN POSTASSIUM [Concomitant]
  10. METHOTREXATE [Concomitant]
  11. MOXONIDINE [Concomitant]
  12. PARACETAMOL [Concomitant]
  13. PIRITON [Concomitant]
  14. RANITIDINE [Concomitant]
  15. SURGAM [Concomitant]

REACTIONS (1)
  - MALIGNANT PERITONEAL NEOPLASM [None]
